FAERS Safety Report 9892755 (Version 1)
Quarter: 2014Q1

REPORT INFORMATION
  Report Type: Spontaneous
  Country: FR (occurrence: FR)
  Receive Date: 20140212
  Receipt Date: 20140212
  Transmission Date: 20141002
  Serious: Yes (Other)
  Sender: FDA-Public Use
  Company Number: PHHY2013FR155484

PATIENT
  Sex: Male

DRUGS (2)
  1. OSLIF BREEZHALER [Suspect]
     Dosage: 150 UG, UNK
     Route: 055
  2. OSLIF BREEZHALER [Suspect]
     Dosage: 300 UG, UNK
     Route: 055

REACTIONS (1)
  - Deafness [Unknown]
